FAERS Safety Report 21436478 (Version 2)
Quarter: 2022Q4

REPORT INFORMATION
  Report Type: Spontaneous
  Country: ES (occurrence: ES)
  Receive Date: 20221010
  Receipt Date: 20221025
  Transmission Date: 20230112
  Serious: Yes (Other)
  Sender: FDA-Public Use
  Company Number: ES-MYLANLABS-2022M1096355

PATIENT
  Age: 58 Year
  Sex: Male

DRUGS (2)
  1. SUNITINIB MALATE [Suspect]
     Active Substance: SUNITINIB MALATE
     Indication: Renal cell carcinoma stage IV
     Dosage: 50 MG, CYCLIC (EVERY 24H, FOUR WEEKS ON/TWO OFF)
  2. DURVALUMAB [Suspect]
     Active Substance: DURVALUMAB
     Indication: Renal cell carcinoma stage IV
     Dosage: 1500 MG, CYCLIC (D1/Q4W)

REACTIONS (1)
  - Diffuse uveal melanocytic proliferation [Recovered/Resolved]
